FAERS Safety Report 5456262-5 (Version None)
Quarter: 2007Q3

REPORT INFORMATION
  Report Type: 
  Country: None (occurrence: None)
  Receive Date: 20070918
  Receipt Date: 20070330
  Transmission Date: 20080115
  Serious: Yes (Other)
  Sender: FDA-Public Use
  Company Number: US-ASTRAZENECA-2006UW24631

PATIENT
  Age: 17617 Day
  Sex: Male
  Weight: 81.8 kg

DRUGS (4)
  1. SEROQUEL [Suspect]
     Route: 048
  2. ABILIFY [Concomitant]
  3. ZYPREXA [Concomitant]
  4. OTHER PSYCHIATRIC MEDICATION [Concomitant]
     Dates: start: 20060305, end: 20061229

REACTIONS (3)
  - DIABETES MELLITUS [None]
  - DIABETIC COMA [None]
  - KETOACIDOSIS [None]
